FAERS Safety Report 12722489 (Version 1)
Quarter: 2016Q3

REPORT INFORMATION
  Report Type: Spontaneous
  Country: US (occurrence: US)
  Receive Date: 20160907
  Receipt Date: 20160907
  Transmission Date: 20161109
  Serious: No
  Sender: FDA-Public Use
  Company Number: US-GLAXOSMITHKLINE-US2016130142

PATIENT
  Sex: Male

DRUGS (3)
  1. OMEGA-3-ACID ETHYL ESTERS CAPSULE [Suspect]
     Active Substance: OMEGA-3-ACID ETHYL ESTERS
     Indication: BLOOD CHOLESTEROL INCREASED
  2. LISINOPRIL. [Concomitant]
     Active Substance: LISINOPRIL
  3. OMEGA-3-ACID ETHYL ESTERS CAPSULE [Suspect]
     Active Substance: OMEGA-3-ACID ETHYL ESTERS
     Indication: BLOOD TRIGLYCERIDES INCREASED
     Dosage: 4 G, 1D
     Route: 048
     Dates: start: 2014

REACTIONS (3)
  - Dysgeusia [Unknown]
  - Drug ineffective [Unknown]
  - Eructation [Unknown]
